FAERS Safety Report 7661478-3 (Version None)
Quarter: 2011Q3

REPORT INFORMATION
  Report Type: 
  Country: None (occurrence: None)
  Receive Date: 20110805
  Receipt Date: 20101015
  Transmission Date: 20111222
  Serious: No
  Sender: FDA-Public Use
  Company Number: US-ABBOTT-10P-163-0679061-00

PATIENT
  Sex: Female
  Weight: 79.45 kg

DRUGS (4)
  1. CRESTOR [Concomitant]
     Indication: BLOOD CHOLESTEROL INCREASED
  2. TRILIPIX [Suspect]
     Indication: BLOOD CHOLESTEROL INCREASED
  3. NIASPAN [Suspect]
     Indication: BLOOD CHOLESTEROL INCREASED
     Dates: start: 20100901
  4. LEVOXYL [Concomitant]
     Indication: THYROID DISORDER

REACTIONS (4)
  - NAUSEA [None]
  - SKIN BURNING SENSATION [None]
  - DIZZINESS [None]
  - FLUSHING [None]
